FAERS Safety Report 21719270 (Version 1)
Quarter: 2022Q4

REPORT INFORMATION
  Report Type: Report from Study
  Country: GB (occurrence: GB)
  Receive Date: 20221213
  Receipt Date: 20221213
  Transmission Date: 20230113
  Serious: Yes (Hospitalization)
  Sender: FDA-Public Use
  Company Number: GB-AUROBINDO-AUR-APL-2022-051874

PATIENT

DRUGS (1)
  1. AMOXICILLIN [Suspect]
     Active Substance: AMOXICILLIN
     Indication: Product used for unknown indication
     Dosage: UNK
     Route: 048

REACTIONS (5)
  - Gastrointestinal disorder [Unknown]
  - Vomiting [Unknown]
  - Diarrhoea [Unknown]
  - Hypotension [Unknown]
  - Oxygen saturation decreased [Unknown]
